FAERS Safety Report 7220433-8 (Version None)
Quarter: 2011Q1

REPORT INFORMATION
  Report Type: 
  Country: None (occurrence: None)
  Receive Date: 20110111
  Receipt Date: 20110105
  Transmission Date: 20110831
  Serious: Yes (Other)
  Sender: FDA-Public Use
  Company Number: US-BRACCO-005779

PATIENT
  Sex: Female

DRUGS (2)
  1. INSULIN [Concomitant]
  2. READI-CAT [Suspect]
     Indication: COMPUTERISED TOMOGRAM
     Dosage: 1 BOTTLE (NOT SURE IF THE ADDITIONAL LIQUID SHE DRANK LATER IN THE OFFICE WAS BARIUM OR NOT)
     Route: 048
     Dates: start: 20110104, end: 20110104

REACTIONS (1)
  - BLOOD GLUCOSE INCREASED [None]
